FAERS Safety Report 4724939-2 (Version None)
Quarter: 2005Q3

REPORT INFORMATION
  Report Type: 
  Country: None (occurrence: None)
  Receive Date: 20050720
  Receipt Date: 20050720
  Transmission Date: 20060218
  Serious: Yes (Hospitalization)
  Sender: FDA-Public Use
  Company Number: None

PATIENT
  Sex: Male

DRUGS (7)
  1. QUETIAPINE FUMARATE [Suspect]
     Indication: POST-TRAUMATIC STRESS DISORDER
     Dosage: 25MG/50 MG   AM/HS   ORAL
     Route: 048
     Dates: start: 20030626, end: 20050419
  2. SIMVASTATIN [Concomitant]
  3. ASPIRIN [Concomitant]
  4. PRAZOSIN HCL [Concomitant]
  5. TRAMADOL [Concomitant]
  6. NEFAZODONE HCL [Concomitant]
  7. HYDROXYZINE [Concomitant]

REACTIONS (5)
  - BLOOD GLUCOSE INCREASED [None]
  - NAUSEA [None]
  - POLYDIPSIA [None]
  - POLYURIA [None]
  - VOMITING [None]
